FAERS Safety Report 25872641 (Version 2)
Quarter: 2025Q4

REPORT INFORMATION
  Report Type: Report from Study
  Country: US (occurrence: US)
  Receive Date: 20251002
  Receipt Date: 20251029
  Transmission Date: 20260117
  Serious: Yes (Other)
  Sender: ALEXION PHARMACEUTICALS
  Company Number: US-AstraZeneca-CH-00960224A

PATIENT
  Sex: Female
  Weight: 58.503 kg

DRUGS (1)
  1. DAPAGLIFLOZIN [Suspect]
     Active Substance: DAPAGLIFLOZIN
     Dosage: UNK
     Route: 065

REACTIONS (2)
  - Dementia Alzheimer^s type [Unknown]
  - Amnesia [Unknown]
